FAERS Safety Report 8958552 (Version 1)
Quarter: 2012Q4

REPORT INFORMATION
  Report Type: Spontaneous
  Country: BR (occurrence: None)
  Receive Date: 20121203
  Receipt Date: 20121203
  Transmission Date: 20130627
  Serious: Yes (Hospitalization)
  Sender: FDA-Public Use
  Company Number: DSU-2012-09347

PATIENT
  Age: 46 Year
  Sex: Female

DRUGS (6)
  1. OLMETEC HCT (HYDROCHLOROTHIAZIDE, OLMESARTAN MEDOXOMIL) (TABLET) (HYDROCHLOROTHIAZIDE, OLMESARTAN MEDOXOMIL) [Suspect]
     Dosage: 40/12.5 mg (QD), Per oral
     Route: 048
     Dates: start: 20081117
  2. AAS (ACETYLSALICYLIC ACID) (TABLET) ACETYLSALICYLIC ACID) [Concomitant]
  3. ATORVASTATIN (ATORVASTATIN) (TABLET) (ATORVASTATIN) [Concomitant]
  4. CLOPIDOGREL (CLOPIDOGREL) (TABLET) (CLOPIDOGREL) [Concomitant]
  5. METOPROLOL (METOPROLOL) (TABLET) (METOPROLOL) [Concomitant]
  6. DAFORIN (FLUOXETIN HYDROCHLORIDE) (TABLET) (FLUOXETINE HYDROCHLORIDE) [Concomitant]

REACTIONS (1)
  - Infarction [None]
